FAERS Safety Report 8518664-X (Version None)
Quarter: 2012Q3

REPORT INFORMATION
  Report Type: 
  Country: None (occurrence: None)
  Receive Date: 20120718
  Receipt Date: 20110624
  Transmission Date: 20120928
  Serious: No
  Sender: FDA-Public Use
  Company Number: US-BRISTOL-MYERS SQUIBB COMPANY-15799786

PATIENT
  Sex: Female

DRUGS (1)
  1. COUMADIN [Suspect]
     Dosage: 1DF:5MG TABS

REACTIONS (3)
  - HAEMORRHAGE [None]
  - LACERATION [None]
  - WEIGHT INCREASED [None]
